FAERS Safety Report 9435610 (Version 3)
Quarter: 2013Q4

REPORT INFORMATION
  Report Type: Spontaneous
  Country: US (occurrence: US)
  Receive Date: 20130730
  Receipt Date: 20131001
  Transmission Date: 20140711
  Serious: Yes (Other)
  Sender: FDA-Public Use
  Company Number: ACO_37536_2013

PATIENT
  Age: 43 Year
  Sex: Female
  Weight: 81.6 kg

DRUGS (8)
  1. AMPYRA [Suspect]
     Indication: GAIT DISTURBANCE
     Route: 048
     Dates: start: 20130617, end: 20130629
  2. AMPYRA [Suspect]
     Indication: MULTIPLE SCLEROSIS
     Route: 048
     Dates: start: 20130617, end: 20130629
  3. DIMETHYL FUMARATE (DIMETHYL FUMARATE) [Concomitant]
  4. MOTRIN (IBUPROFEN) [Concomitant]
  5. RITALIN (METHYLPHENIDATE HYDROCHLORIDE) [Concomitant]
  6. MIRAPEX (PRAMIPEXOLE DIHYDROCHLORIDE) [Concomitant]
  7. CELEXA (CITALOPRAM HYDROBROMIDE) [Concomitant]
  8. PRILOSEC (OMEPRAZOLE MAGNESIUM) [Concomitant]

REACTIONS (7)
  - Convulsion [None]
  - Balance disorder [None]
  - Visual impairment [None]
  - Tremor [None]
  - Speech disorder [None]
  - Nervousness [None]
  - Speech disorder [None]
